FAERS Safety Report 22240048 (Version 2)
Quarter: 2023Q2

REPORT INFORMATION
  Report Type: Spontaneous
  Country: US (occurrence: US)
  Receive Date: 20230421
  Receipt Date: 20230526
  Transmission Date: 20230721
  Serious: No
  Sender: FDA-Public Use
  Company Number: US-PFIZER INC-PV202300065909

PATIENT
  Age: 65 Year
  Sex: Male

DRUGS (1)
  1. NURTEC ODT [Suspect]
     Active Substance: RIMEGEPANT SULFATE
     Indication: Ophthalmic migraine
     Dosage: TAKE ONE TABLET BY MOUTH EVERY OTHER DAY. NO MORE THAN ONE DOSE IN 24 HRS
     Route: 048

REACTIONS (2)
  - Blood pressure abnormal [Unknown]
  - Off label use [Unknown]
